FAERS Safety Report 24167751 (Version 1)
Quarter: 2024Q3

REPORT INFORMATION
  Report Type: Report from Study
  Country: US (occurrence: US)
  Receive Date: 20240802
  Receipt Date: 20240802
  Transmission Date: 20241017
  Serious: Yes (Other)
  Sender: AMGEN
  Company Number: US-AMGEN-USASL2024039349

PATIENT
  Age: 55 Year
  Sex: Female
  Weight: 81.92 kg

DRUGS (1)
  1. REPATHA [Suspect]
     Active Substance: EVOLOCUMAB
     Indication: Cardiovascular disorder
     Dosage: 140 MILLIGRAM, Q2WK
     Route: 065
     Dates: start: 20240124, end: 2024

REACTIONS (5)
  - Paraesthesia [Recovered/Resolved]
  - Swelling face [Recovered/Resolved]
  - Hypoaesthesia [Unknown]
  - Abdominal pain upper [Unknown]
  - Peripheral swelling [Unknown]

NARRATIVE: CASE EVENT DATE: 20240216
